FAERS Safety Report 15232326 (Version 5)
Quarter: 2019Q3

REPORT INFORMATION
  Report Type: Report from Study
  Country: JP (occurrence: JP)
  Receive Date: 20180802
  Receipt Date: 20190705
  Transmission Date: 20191004
  Serious: Yes (Death, Life-Threatening, Hospitalization)
  Sender: FDA-Public Use
  Company Number: JP-BAUSCH-BL-2018-020801

PATIENT
  Age: 41 Year
  Sex: Male

DRUGS (11)
  1. CHOREAZINE [Suspect]
     Active Substance: TETRABENAZINE
     Indication: HUNTINGTON^S DISEASE
     Route: 048
     Dates: start: 20180411, end: 20180417
  2. RISPERDAL [Concomitant]
     Active Substance: RISPERIDONE
     Indication: SCHIZOPHRENIFORM DISORDER
     Route: 048
     Dates: start: 20180312, end: 20180415
  3. BIOFERMIN [Concomitant]
     Active Substance: DIETARY SUPPLEMENT\PROBIOTICS
     Indication: DIARRHOEA
     Route: 048
     Dates: start: 20180312, end: 20180511
  4. CHOREAZINE [Suspect]
     Active Substance: TETRABENAZINE
     Dosage: INCREASED TO 50 MG/DAY
     Route: 050
     Dates: start: 20180430, end: 20180521
  5. LAC-B [Concomitant]
     Active Substance: BIFIDOBACTERIUM SPP.
     Indication: DIARRHOEA
     Route: 048
     Dates: start: 20180411, end: 20180604
  6. CHOREAZINE [Suspect]
     Active Substance: TETRABENAZINE
     Dosage: INCREASED TO 37.5 MG/DAY
     Route: 050
     Dates: start: 20180423, end: 20180429
  7. CHOREAZINE [Suspect]
     Active Substance: TETRABENAZINE
     Route: 050
     Dates: start: 20180522, end: 20180604
  8. RISPERIDONE. [Suspect]
     Active Substance: RISPERIDONE
     Indication: SCHIZOPHRENIFORM DISORDER
     Route: 048
     Dates: start: 20180416, end: 20180604
  9. RACOL NF [Concomitant]
     Active Substance: AMINO ACIDS\DEXTROSE\ELECTROLYTES NOS\SOYBEAN OIL\VITAMINS
     Indication: NUTRITIONAL SUPPLEMENTATION
     Dosage: PARENTERAL NUTRITION
     Route: 050
     Dates: start: 20180522, end: 20180610
  10. CHOREAZINE [Suspect]
     Active Substance: TETRABENAZINE
     Dosage: INCREASED TO 25 MG/DAY
     Route: 050
     Dates: start: 20180418, end: 20180422
  11. NITRAZEPAM [Suspect]
     Active Substance: NITRAZEPAM
     Indication: INSOMNIA
     Route: 048
     Dates: start: 20180312, end: 20180604

REACTIONS (3)
  - Seizure [Recovered/Resolved]
  - Gait disturbance [Not Recovered/Not Resolved]
  - Drug-induced liver injury [Not Recovered/Not Resolved]

NARRATIVE: CASE EVENT DATE: 20180603
